FAERS Safety Report 17535714 (Version 1)
Quarter: 2020Q1

REPORT INFORMATION
  Report Type: Spontaneous
  Country: FR (occurrence: FR)
  Receive Date: 20200312
  Receipt Date: 20200312
  Transmission Date: 20200409
  Serious: Yes (Other)
  Sender: FDA-Public Use
  Company Number: FR-NOVOPROD-717036

PATIENT
  Age: 15 Year
  Sex: Female

DRUGS (1)
  1. NORDITROPIN [Suspect]
     Active Substance: SOMATROPIN
     Indication: GROWTH HORMONE DEFICIENCY
     Dosage: 1.7 MG, QD
     Route: 058
     Dates: start: 2017, end: 202001

REACTIONS (2)
  - School refusal [Unknown]
  - Depressive symptom [Recovering/Resolving]

NARRATIVE: CASE EVENT DATE: 201905
